FAERS Safety Report 4370622-5 (Version None)
Quarter: 2004Q2

REPORT INFORMATION
  Report Type: 
  Country: None (occurrence: None)
  Receive Date: 20040528
  Receipt Date: 20040307
  Transmission Date: 20050107
  Serious: Yes (Hospitalization)
  Sender: FDA-Public Use
  Company Number: MPSI-10228

PATIENT
  Age: 10 Month
  Sex: Male

DRUGS (1)
  1. ALDURAZYME [Suspect]
     Indication: MUCOPOLYSACCHARIDOSIS IH
     Dosage: 0.58 MG/KG QWK IV
     Route: 042

REACTIONS (2)
  - ENGRAFTMENT SYNDROME [None]
  - LUNG DISORDER [None]
